FAERS Safety Report 4400752-0 (Version None)
Quarter: 2004Q3

REPORT INFORMATION
  Report Type: 
  Country: None (occurrence: None)
  Receive Date: 20040714
  Receipt Date: 20040507
  Transmission Date: 20050211
  Serious: Yes (Hospitalization)
  Sender: FDA-Public Use
  Company Number: RB-708-2004

PATIENT
  Age: 80 Year
  Sex: Male

DRUGS (5)
  1. BUPRENORPHINE HYDROCHLORIDE [Suspect]
     Dosage: 1.2 MG, SL
     Route: 060
     Dates: start: 20030602, end: 20030602
  2. PRETERAX [Concomitant]
  3. FUROSEMIDE [Concomitant]
  4. LODOZ [Concomitant]
  5. TRAMADOL HCL [Concomitant]

REACTIONS (3)
  - ATRIAL FIBRILLATION [None]
  - FALL [None]
  - HYPOKALAEMIA [None]
